FAERS Safety Report 14558206 (Version 1)
Quarter: 2018Q1

REPORT INFORMATION
  Report Type: Spontaneous
  Country: DE (occurrence: DE)
  Receive Date: 20180221
  Receipt Date: 20180221
  Transmission Date: 20180509
  Serious: Yes (Death, Hospitalization, Other)
  Sender: FDA-Public Use
  Company Number: PHHY2018DE026825

PATIENT
  Age: 52 Year
  Sex: Female
  Weight: 66 kg

DRUGS (14)
  1. FOLINIC ACID [Suspect]
     Active Substance: LEUCOVORIN
     Indication: PRODUCT USED FOR UNKNOWN INDICATION
     Route: 065
  2. CLEXANE [Concomitant]
     Active Substance: ENOXAPARIN SODIUM
     Indication: PRODUCT USED FOR UNKNOWN INDICATION
     Route: 065
  3. IRINOTECAN [Suspect]
     Active Substance: IRINOTECAN
     Dosage: 270 MG
     Route: 042
  4. AVASTIN [Suspect]
     Active Substance: BEVACIZUMAB
     Indication: COLORECTAL CANCER
     Dosage: 330 MG, UNK
     Route: 042
  5. IRINOTECAN [Suspect]
     Active Substance: IRINOTECAN
     Dosage: 222 MG
     Route: 042
  6. AVASTIN [Suspect]
     Active Substance: BEVACIZUMAB
     Dosage: 230 MG, UNK
     Route: 042
  7. GRANOCYTE [Concomitant]
     Active Substance: LENOGRASTIM
     Indication: PRODUCT USED FOR UNKNOWN INDICATION
     Route: 065
  8. OXALIPLATIN. [Suspect]
     Active Substance: OXALIPLATIN
     Indication: PRODUCT USED FOR UNKNOWN INDICATION
     Route: 065
  9. 5-FLUOROURACIL [Suspect]
     Active Substance: FLUOROURACIL
     Indication: COLORECTAL CANCER
     Dosage: 3550 MG, UNK
     Route: 042
  10. IRINOTECAN [Suspect]
     Active Substance: IRINOTECAN
     Indication: PRODUCT USED FOR UNKNOWN INDICATION
     Dosage: 220 MG
     Route: 042
  11. IRINOTECAN [Suspect]
     Active Substance: IRINOTECAN
     Dosage: 275 MG
     Route: 042
  12. 5-FLUOROURACIL [Suspect]
     Active Substance: FLUOROURACIL
     Dosage: 625 MG, UNK
     Route: 040
  13. AVASTIN [Suspect]
     Active Substance: BEVACIZUMAB
     Dosage: 280 MG, UNK
     Route: 042
  14. 5-FLUOROURACIL [Suspect]
     Active Substance: FLUOROURACIL
     Dosage: 600 MG, UNK
     Route: 040

REACTIONS (10)
  - Metastases to meninges [Unknown]
  - Cystitis haemorrhagic [Unknown]
  - Cystitis radiation [Unknown]
  - Vomiting [Recovered/Resolved]
  - Metastases to central nervous system [Fatal]
  - Bladder tamponade [Unknown]
  - Proteinuria [Recovered/Resolved]
  - Inappropriate schedule of drug administration [Unknown]
  - Mucosal inflammation [Recovered/Resolved]
  - Off label use [Unknown]

NARRATIVE: CASE EVENT DATE: 20160107
